FAERS Safety Report 20035343 (Version 2)
Quarter: 2021Q4

REPORT INFORMATION
  Report Type: Spontaneous
  Country: GB (occurrence: GB)
  Receive Date: 20211104
  Receipt Date: 20211119
  Transmission Date: 20220303
  Serious: Yes (Death, Other)
  Sender: FDA-Public Use
  Company Number: None

PATIENT
  Age: 88 Year
  Sex: Male
  Weight: 92 kg

DRUGS (13)
  1. CIMETIDINE [Suspect]
     Active Substance: CIMETIDINE
     Indication: Product used for unknown indication
     Dosage: 40 ML DAILY; 10 ML, QID;
     Route: 048
     Dates: start: 20210910
  2. ISOPROPYL MYRISTATE\PARAFFIN [Suspect]
     Active Substance: ISOPROPYL MYRISTATE\PARAFFIN
     Indication: Product used for unknown indication
     Dosage: 1 DF, DAILY, APPLY
     Route: 065
     Dates: start: 20200326
  3. CHOLECALCIFEROL [Suspect]
     Active Substance: CHOLECALCIFEROL
     Indication: Product used for unknown indication
     Dosage: UNK, TO BE TAKEN EACH MORNING; ;
     Route: 065
     Dates: start: 20210122
  4. DILTIAZEM [Suspect]
     Active Substance: DILTIAZEM
     Indication: Product used for unknown indication
     Dosage: 1 DF, DAILY, IN THE MORNING;
     Route: 065
     Dates: start: 20201109
  5. FLUOROURACIL [Suspect]
     Active Substance: FLUOROURACIL
     Indication: Product used for unknown indication
     Dosage: UNK,APPLY ONCE TO TWICE DAILY FOR 3-4 WEEKS
     Route: 065
     Dates: start: 20211001
  6. NITROGLYCERIN [Suspect]
     Active Substance: NITROGLYCERIN
     Indication: Product used for unknown indication
     Dosage: 1 DF, PUFF; ;
     Route: 060
     Dates: start: 20200326
  7. OMEPRAZOLE [Suspect]
     Active Substance: OMEPRAZOLE
     Indication: Product used for unknown indication
     Dosage: 350 MILLIGRAMS
     Route: 048
     Dates: start: 20210910, end: 20211015
  8. RAMIPRIL [Suspect]
     Active Substance: RAMIPRIL
     Indication: Blood pressure measurement
     Dosage: 1 DF, DAILY;
     Route: 065
     Dates: start: 20201015
  9. TAMSULOSIN HYDROCHLORIDE [Suspect]
     Active Substance: TAMSULOSIN HYDROCHLORIDE
     Indication: Product used for unknown indication
     Dosage: 1 DF, DAILY; ;
     Route: 065
     Dates: start: 20210219
  10. PRADAXA [Suspect]
     Active Substance: DABIGATRAN ETEXILATE MESYLATE
     Indication: Anticoagulant therapy
     Dosage: 1 DF, BID, TO THIN BLOOD
     Dates: start: 20211015
  11. BENZALKONIUM CHLORIDE\DIMETHICONE\HYDROCORTISONE\NYSTATIN [Suspect]
     Active Substance: BENZALKONIUM CHLORIDE\DIMETHICONE\HYDROCORTISONE\NYSTATIN
     Indication: Skin lesion
     Dosage: 1 DF, TID, APPLY UNTIL THE LESIONS HAVE HEALED
     Dates: start: 20210910, end: 20210924
  12. HYDROCORTISONE [Suspect]
     Active Substance: HYDROCORTISONE
     Indication: Product used for unknown indication
     Dosage: 1 DF, BID, APPLY SPARINGLY TO THE AFFECTED AREA
     Dates: start: 20211001
  13. ACETAMINOPHEN [Suspect]
     Active Substance: ACETAMINOPHEN
     Indication: Product used for unknown indication
     Dosage: 2 DF, QID
     Dates: start: 20210122

REACTIONS (1)
  - Erythema multiforme [Fatal]

NARRATIVE: CASE EVENT DATE: 20211015
